FAERS Safety Report 11216753 (Version 6)
Quarter: 2015Q4

REPORT INFORMATION
  Report Type: Spontaneous
  Country: US (occurrence: US)
  Receive Date: 20150624
  Receipt Date: 20151001
  Transmission Date: 20160304
  Serious: Yes (Hospitalization, Other)
  Sender: FDA-Public Use
  Company Number: US-PFIZER INC-2015205738

PATIENT
  Age: 89 Year
  Sex: Male
  Weight: 90 kg

DRUGS (3)
  1. COUMADIN [Suspect]
     Active Substance: WARFARIN SODIUM
     Dosage: UNK
  2. DETROL LA [Suspect]
     Active Substance: TOLTERODINE TARTRATE
     Indication: MICTURITION URGENCY
     Dosage: 4 MG, 1X/DAY
  3. METOPROLOL TARTRATE. [Suspect]
     Active Substance: METOPROLOL TARTRATE
     Indication: ATRIAL FIBRILLATION
     Dosage: 50 MG, 1X/DAY
     Dates: start: 2013

REACTIONS (9)
  - Drug intolerance [Unknown]
  - Fall [Recovered/Resolved]
  - Fatigue [Recovered/Resolved]
  - Memory impairment [Not Recovered/Not Resolved]
  - Loss of consciousness [Recovered/Resolved]
  - Cerebral haemorrhage [Recovered/Resolved]
  - Cerebral thrombosis [Unknown]
  - Contusion [Recovered/Resolved]
  - Laceration [Recovered/Resolved]

NARRATIVE: CASE EVENT DATE: 201311
